FAERS Safety Report 9132496 (Version 1)
Quarter: 2013Q1

REPORT INFORMATION
  Report Type: Spontaneous
  Country: FR (occurrence: FR)
  Receive Date: 20130301
  Receipt Date: 20130301
  Transmission Date: 20140127
  Serious: Yes (Life-Threatening)
  Sender: FDA-Public Use
  Company Number: FR-GLAXOSMITHKLINE-B0869513A

PATIENT
  Age: 32 Year
  Sex: Female

DRUGS (12)
  1. AZANTAC [Suspect]
     Indication: PRODUCT USED FOR UNKNOWN INDICATION
     Dosage: 50MG SINGLE DOSE
     Route: 042
     Dates: start: 20120702, end: 20120702
  2. TRACRIUM [Suspect]
     Indication: ANAESTHESIA
     Dosage: 30MG SINGLE DOSE
     Route: 042
     Dates: start: 20120702, end: 20120702
  3. ZINNAT [Suspect]
     Indication: PRODUCT USED FOR UNKNOWN INDICATION
     Dosage: 1.5G SINGLE DOSE
     Route: 042
     Dates: start: 20120702, end: 20120702
  4. CIMETIDINE [Suspect]
     Indication: PREMEDICATION
     Dosage: 200MG SINGLE DOSE
     Route: 048
     Dates: start: 20120702, end: 20120702
  5. XANAX [Concomitant]
     Indication: PREMEDICATION
     Dosage: .5MG SINGLE DOSE
     Dates: start: 20120702, end: 20120702
  6. DIPRIVAN [Concomitant]
     Indication: ANAESTHESIA
     Dates: start: 20120702, end: 20120702
  7. SUFENTA [Concomitant]
     Indication: ANAESTHESIA
     Dates: start: 20120702, end: 20120702
  8. HYPNOVEL [Concomitant]
     Indication: ANAESTHESIA
     Dates: start: 20120702, end: 20120702
  9. KETAMINE [Concomitant]
     Indication: ANAESTHESIA
     Dates: start: 20120702, end: 20120702
  10. SEVOFLURANE [Concomitant]
     Indication: ANAESTHESIA
     Dates: start: 20120702, end: 20120702
  11. PERFALGAN [Concomitant]
     Dates: start: 20120702, end: 20120702
  12. DEXAMETHASONE [Concomitant]
     Dosage: 20MG SINGLE DOSE
     Dates: start: 20120702, end: 20120702

REACTIONS (3)
  - Anaphylactic shock [Recovered/Resolved]
  - Hypotension [Recovered/Resolved]
  - Urticaria [Recovered/Resolved]
